FAERS Safety Report 15583087 (Version 1)
Quarter: 2018Q4

REPORT INFORMATION
  Report Type: Spontaneous
  Country: US (occurrence: US)
  Receive Date: 20181105
  Receipt Date: 20181105
  Transmission Date: 20190205
  Serious: No
  Sender: FDA-Public Use
  Company Number: US-TEVA-2018-US-971837

PATIENT
  Sex: Female

DRUGS (1)
  1. GLIPIZIDE ACTAVIS [Suspect]
     Active Substance: GLIPIZIDE
     Indication: DIABETES MELLITUS
     Route: 065

REACTIONS (3)
  - Hiccups [Unknown]
  - Vomiting [Unknown]
  - Nausea [Unknown]
